FAERS Safety Report 4299773-0 (Version None)
Quarter: 2004Q1

REPORT INFORMATION
  Report Type: 
  Country: None (occurrence: None)
  Receive Date: 20040126
  Receipt Date: 20031118
  Transmission Date: 20041129
  Serious: No
  Sender: FDA-Public Use
  Company Number: USA031152787

PATIENT
  Sex: Male

DRUGS (4)
  1. STRATTERA [Suspect]
     Indication: ATTENTION DEFICIT/HYPERACTIVITY DISORDER
     Dosage: 80 MG/DAY
     Dates: start: 20030901
  2. CONCERTA [Concomitant]
  3. WELLBUTRIN [Concomitant]
  4. DOXEPIN HCL [Concomitant]

REACTIONS (3)
  - DYSURIA [None]
  - GROIN PAIN [None]
  - MICTURITION DISORDER [None]
